FAERS Safety Report 10088998 (Version 2)
Quarter: 2014Q2

REPORT INFORMATION
  Report Type: Report from Study
  Country: AU (occurrence: AU)
  Receive Date: 20140421
  Receipt Date: 20140421
  Transmission Date: 20141212
  Serious: Yes (Hospitalization, Other)
  Sender: FDA-Public Use
  Company Number: PHHY2014AU034315

PATIENT
  Sex: Male

DRUGS (2)
  1. SANDOSTATIN LAR [Suspect]
     Indication: CARCINOID SYNDROME
     Dosage: 30 MG, UNK
     Route: 030
  2. SANDOSTATIN LAR [Suspect]
     Dosage: 30 MG, UKN
     Route: 030

REACTIONS (6)
  - Hypercalcaemia [Unknown]
  - Delirium [Unknown]
  - Pain [Unknown]
  - Renal failure [Unknown]
  - Lethargy [Unknown]
  - General physical health deterioration [Unknown]
